FAERS Safety Report 18900736 (Version 2)
Quarter: 2021Q3

REPORT INFORMATION
  Report Type: Report from Study
  Country: CA (occurrence: CA)
  Receive Date: 20210217
  Receipt Date: 20210824
  Transmission Date: 20211014
  Serious: Yes (Hospitalization, Other)
  Sender: FDA-Public Use
  Company Number: CA-JNJFOC-20210220668

PATIENT
  Sex: Female

DRUGS (2)
  1. REMICADE [Suspect]
     Active Substance: INFLIXIMAB
     Route: 042
     Dates: start: 20110107, end: 20210128
  2. REMICADE [Suspect]
     Active Substance: INFLIXIMAB
     Indication: CROHN^S DISEASE
     Dosage: PATIENT WILL BE RESUMING REMICADE/RE?INDUCTION AFTER DRUG HOLIDAY
     Route: 042
     Dates: start: 20091117

REACTIONS (2)
  - Gastrointestinal carcinoma [Unknown]
  - Gastric cancer [Unknown]
